FAERS Safety Report 9095685 (Version 1)
Quarter: 2013Q1

REPORT INFORMATION
  Report Type: Spontaneous
  Country: AT (occurrence: None)
  Receive Date: 20130123
  Receipt Date: 20130123
  Transmission Date: 20140127
  Serious: Yes (Other)
  Sender: FDA-Public Use
  Company Number: 2012-22798

PATIENT
  Sex: Male

DRUGS (2)
  1. PACLITAXEL [Suspect]
     Indication: OVARIAN DYSGERMINOMA STAGE I
     Route: 064
  2. CARBOPLATIN [Suspect]
     Indication: OVARIAN DYSGERMINOMA STAGE I
     Dosage: 5 AUC (AREA UNDER THE CURVE); 3 CYCLES, EVERY 3 WEEKS, TRANSPLACENTAL
     Route: 064

REACTIONS (7)
  - Neonatal respiratory distress syndrome [None]
  - Anaemia neonatal [None]
  - Maternal drugs affecting foetus [None]
  - Caesarean section [None]
  - Premature baby [None]
  - Low birth weight baby [None]
  - Developmental delay [None]
